FAERS Safety Report 7063561-2 (Version None)
Quarter: 2010Q4

REPORT INFORMATION
  Report Type: 
  Country: None (occurrence: None)
  Receive Date: 20101026
  Receipt Date: 20100607
  Transmission Date: 20110411
  Serious: No
  Sender: FDA-Public Use
  Company Number: US-ABBOTT-10P-163-0649556-00

PATIENT
  Sex: Female
  Weight: 154.36 kg

DRUGS (5)
  1. LUPRON DEPOT [Suspect]
     Indication: UTERINE LEIOMYOMA
     Route: 030
     Dates: start: 20100602
  2. NORETHINDRONE [Concomitant]
     Indication: PRODUCT USED FOR UNKNOWN INDICATION
  3. AMLODIPINE [Concomitant]
     Indication: HYPERTENSION
     Dosage: 5/20
  4. HYDROCHLOROTHIAZIDE [Concomitant]
     Indication: HYPERTENSION
  5. IRON [Concomitant]
     Indication: ANAEMIA

REACTIONS (1)
  - MYALGIA [None]
